FAERS Safety Report 8801252 (Version 1)
Quarter: 2012Q4

REPORT INFORMATION
  Report Type: 
  Country: CH (occurrence: CH)
  Receive Date: 20120921
  Receipt Date: 20120921
  Transmission Date: 20130627
  Serious: Yes (Hospitalization)
  Sender: FDA-Public Use
  Company Number: CH-ASTRAZENECA-2012SE72205

PATIENT
  Age: 67 Year
  Sex: Female

DRUGS (1)
  1. ANASTROZOLE [Suspect]
     Route: 048

REACTIONS (1)
  - Transient global amnesia [Recovered/Resolved]
